FAERS Safety Report 4302922-9 (Version None)
Quarter: 2004Q1

REPORT INFORMATION
  Report Type: 
  Country: None (occurrence: None)
  Receive Date: 20040223
  Receipt Date: 20040223
  Transmission Date: 20041129
  Serious: Yes (Hospitalization)
  Sender: FDA-Public Use
  Company Number: None

PATIENT
  Age: 79 Year
  Sex: Female

DRUGS (2)
  1. VORICONAZOLE 200 MG PFIZER [Suspect]
     Indication: ASPERGILLOSIS
     Dosage: 200 MG DAILY ORAL
     Route: 048
  2. WARFARIN 5 MG BMS [Suspect]
     Indication: EMBOLISM
     Dosage: 5 MG DAILY ORAL
     Route: 048

REACTIONS (3)
  - INTERNATIONAL NORMALISED RATIO INCREASED [None]
  - NAUSEA [None]
  - VOMITING [None]
